FAERS Safety Report 9234138 (Version 1)
Quarter: 2013Q2

REPORT INFORMATION
  Report Type: Spontaneous
  Country: FR (occurrence: FR)
  Receive Date: 20130416
  Receipt Date: 20130416
  Transmission Date: 20140414
  Serious: Yes (Hospitalization)
  Sender: FDA-Public Use
  Company Number: FR-ROCHE-1213244

PATIENT
  Age: 88 Year
  Sex: Female

DRUGS (17)
  1. VALIUM [Suspect]
     Indication: PRODUCT USED FOR UNKNOWN INDICATION
     Route: 048
  2. ATHYMIL [Suspect]
     Indication: PRODUCT USED FOR UNKNOWN INDICATION
     Route: 048
  3. XYZALL [Suspect]
     Indication: PRODUCT USED FOR UNKNOWN INDICATION
     Route: 048
  4. MYOLASTAN [Suspect]
     Indication: PRODUCT USED FOR UNKNOWN INDICATION
     Route: 048
     Dates: end: 20120325
  5. DEBRIDAT [Suspect]
     Indication: PRODUCT USED FOR UNKNOWN INDICATION
     Route: 048
     Dates: end: 20120325
  6. IBUPROFENE [Suspect]
     Indication: PRODUCT USED FOR UNKNOWN INDICATION
     Route: 048
     Dates: end: 20130325
  7. SPASFON [Suspect]
     Indication: PRODUCT USED FOR UNKNOWN INDICATION
     Route: 048
     Dates: end: 20130325
  8. ATACAND [Concomitant]
     Route: 048
  9. CORDARONE [Concomitant]
     Route: 048
  10. DOLIPRANE [Concomitant]
     Route: 048
     Dates: end: 20120325
  11. INIPOMP [Concomitant]
     Route: 048
  12. KARDEGIC [Concomitant]
     Route: 048
  13. LEVOTHYROX [Concomitant]
     Route: 048
  14. TANAKAN [Concomitant]
     Route: 048
     Dates: end: 20120325
  15. TRANSIPEG (FRANCE) [Concomitant]
     Route: 048
  16. ARTELAC [Concomitant]
     Dosage: UNIDOSE 1.6 MG/0.5 ML
     Route: 047
  17. TRAVATAN [Concomitant]
     Route: 047

REACTIONS (4)
  - Fall [Recovered/Resolved]
  - Malaise [Recovered/Resolved]
  - Confusional state [Recovered/Resolved]
  - Hyponatraemia [Recovered/Resolved]
